FAERS Safety Report 8475758-5 (Version None)
Quarter: 2012Q2

REPORT INFORMATION
  Report Type: 
  Country: None (occurrence: None)
  Receive Date: 20120628
  Receipt Date: 20120622
  Transmission Date: 20120825
  Serious: Yes (Hospitalization, Disabling)
  Sender: FDA-Public Use
  Company Number: GB-GILEAD-2012-0056856

PATIENT
  Age: 20 Year
  Sex: Male

DRUGS (10)
  1. VISTIDE [Suspect]
     Indication: PROGRESSIVE MULTIFOCAL LEUKOENCEPHALOPATHY
     Dosage: 370 MG, Q1WK
     Route: 042
     Dates: start: 20120328, end: 20120423
  2. VISTIDE [Suspect]
     Indication: JC VIRUS INFECTION
  3. ZIDOVUDINE [Suspect]
     Indication: HIV INFECTION
     Dosage: 250 MG, BID
     Route: 048
     Dates: start: 20120314, end: 20120406
  4. SAQUINAVIR [Concomitant]
     Indication: HIV INFECTION
     Dosage: 1 G, BID
     Route: 048
     Dates: start: 20120406
  5. TENOFOVIR DISOPROXIL FUMARATE [Concomitant]
     Indication: HIV INFECTION
     Dosage: 245 MG, QD
     Route: 048
     Dates: start: 20120314
  6. PROBENECID [Concomitant]
     Dosage: 1 G, UNK
     Route: 048
     Dates: start: 20120328, end: 20120423
  7. KALETRA [Suspect]
     Indication: HIV INFECTION
     Dosage: 2 DF, BID
     Route: 048
     Dates: start: 20120314
  8. MIRTAZAPINE [Concomitant]
     Indication: JC VIRUS INFECTION
     Dosage: 15 MG, QD
     Route: 048
     Dates: start: 20120410
  9. PROBENECID [Concomitant]
     Indication: PRODUCT USED FOR UNKNOWN INDICATION
     Dosage: 2 G, UNK
     Route: 048
     Dates: start: 20120328, end: 20120423
  10. PROBENECID [Concomitant]
     Dosage: 1 G, UNK
     Route: 048
     Dates: start: 20120328, end: 20120423

REACTIONS (2)
  - NEUTROPENIA [None]
  - ILL-DEFINED DISORDER [None]
